FAERS Safety Report 4476280-3 (Version None)
Quarter: 2004Q3

REPORT INFORMATION
  Report Type: 
  Country: None (occurrence: None)
  Receive Date: 20040923
  Receipt Date: 20040728
  Transmission Date: 20050211
  Serious: No
  Sender: FDA-Public Use
  Company Number: USA040773888

PATIENT
  Age: 79 Year
  Sex: Male
  Weight: 84 kg

DRUGS (6)
  1. FORTEO [Suspect]
     Indication: OSTEOPOROSIS
     Dosage: 20 UG
     Dates: start: 20040721
  2. COUMADIN [Concomitant]
  3. AMIODARONE [Concomitant]
  4. CALCIUM WITH VITAMIN D [Concomitant]
  5. TESTIM (TESTOSTERONE) [Concomitant]
  6. ZELNORM /USA/ (TEGASEROD) [Concomitant]

REACTIONS (3)
  - INJECTION SITE ERYTHEMA [None]
  - INJECTION SITE HAEMORRHAGE [None]
  - PRURITUS [None]
